FAERS Safety Report 8758880 (Version 2)
Quarter: 2012Q4

REPORT INFORMATION
  Report Type: 
  Country: CA (occurrence: CA)
  Receive Date: 20120829
  Receipt Date: 20120910
  Transmission Date: 20130627
  Serious: Yes (Other)
  Sender: FDA-Public Use
  Company Number: PHHY2012CA073858

PATIENT
  Sex: Female

DRUGS (11)
  1. ACLASTA [Suspect]
     Indication: OSTEOPOROSIS
     Route: 042
     Dates: start: 20100803
  2. ACLASTA [Suspect]
     Route: 042
     Dates: start: 20110802
  3. ACLASTA [Suspect]
     Route: 042
     Dates: start: 20120823
  4. CALCIUM [Concomitant]
  5. VITAMIN D [Concomitant]
  6. TYLENOL [Concomitant]
  7. ASA [Concomitant]
  8. CLONAZEPAM [Concomitant]
  9. METHOTREXATE [Concomitant]
  10. ADALAT [Concomitant]
  11. NAPROXEN [Concomitant]

REACTIONS (3)
  - Ankle fracture [Unknown]
  - Pathological fracture [Unknown]
  - Foot fracture [Recovering/Resolving]
